FAERS Safety Report 15264631 (Version 1)
Quarter: 2018Q3

REPORT INFORMATION
  Report Type: Spontaneous
  Country: US (occurrence: US)
  Receive Date: 20180723
  Receipt Date: 20180723
  Transmission Date: 20181010
  Serious: Yes (Other)
  Sender: FDA-Public Use
  Company Number: None

PATIENT
  Age: 41 Year
  Sex: Female
  Weight: 76.5 kg

DRUGS (12)
  1. LEVOFLOXACIN. [Suspect]
     Active Substance: LEVOFLOXACIN
     Indication: SINUSITIS
     Dosage: ?          QUANTITY:1 TABLET(S);?
     Route: 048
     Dates: start: 20180719, end: 20180722
  2. LARIN DE [Concomitant]
  3. ZYRTEC [Concomitant]
     Active Substance: CETIRIZINE HYDROCHLORIDE
  4. TURMERIC [Concomitant]
     Active Substance: HERBALS\TURMERIC
  5. SUPER B COMPLEX [Concomitant]
     Active Substance: CYANOCOBALAMIN\DEXPANTHENOL\NIACINAMIDE\PYRIDOXINE HYDROCHLORIDE\RIBOFLAVIN 5^-PHOSPHATE SODIUM\THIAMINE HYDROCHLORIDE\VITAMIN B COMPLEX
  6. METHYLPHENIDATE. [Concomitant]
     Active Substance: METHYLPHENIDATE
  7. ALOE [Concomitant]
     Active Substance: ALOE
  8. BUTTERBUR [Concomitant]
  9. TIZANIDINE. [Concomitant]
     Active Substance: TIZANIDINE
  10. OMPRAZOLE [Concomitant]
     Active Substance: OMEPRAZOLE
  11. POTASSIUM [Concomitant]
     Active Substance: POTASSIUM
  12. MAGNESIUM [Concomitant]
     Active Substance: MAGNESIUM

REACTIONS (3)
  - Myalgia [None]
  - Impaired work ability [None]
  - Arthralgia [None]

NARRATIVE: CASE EVENT DATE: 20180722
